FAERS Safety Report 18201684 (Version 2)
Quarter: 2020Q3

REPORT INFORMATION
  Report Type: Spontaneous
  Country: US (occurrence: US)
  Receive Date: 20200827
  Receipt Date: 20200901
  Transmission Date: 20201103
  Serious: Yes (Other)
  Sender: FDA-Public Use
  Company Number: US-PFIZER INC-2020325804

PATIENT
  Sex: Male
  Weight: 2.7 kg

DRUGS (4)
  1. HEPARIN SODIUM. [Suspect]
     Active Substance: HEPARIN SODIUM
     Indication: SEPTIC SHOCK
  2. ERYTHROMYCIN. [Suspect]
     Active Substance: ERYTHROMYCIN
     Indication: PNEUMONIA LEGIONELLA
     Dosage: UNK
     Route: 064
  3. ERYTHROMYCIN. [Suspect]
     Active Substance: ERYTHROMYCIN
     Indication: SEPTIC SHOCK
  4. HEPARIN SODIUM. [Suspect]
     Active Substance: HEPARIN SODIUM
     Indication: PNEUMONIA LEGIONELLA
     Dosage: UNK
     Route: 064

REACTIONS (4)
  - Meconium ileus [Unknown]
  - Maternal exposure during pregnancy [Unknown]
  - Intestinal perforation [Unknown]
  - Premature baby [Unknown]
